FAERS Safety Report 12135033 (Version 5)
Quarter: 2016Q3

REPORT INFORMATION
  Report Type: Spontaneous
  Country: US (occurrence: US)
  Receive Date: 20160301
  Receipt Date: 20160714
  Transmission Date: 20161109
  Serious: Yes (Death, Hospitalization)
  Sender: FDA-Public Use
  Company Number: US-CELGENEUS-USA-2016026138

PATIENT
  Age: 75 Year
  Sex: Male
  Weight: 79.9 kg

DRUGS (1)
  1. REVLIMID [Suspect]
     Active Substance: LENALIDOMIDE
     Indication: PLASMA CELL MYELOMA RECURRENT
     Dosage: 15 MILLIGRAM
     Route: 048
     Dates: start: 20160107, end: 201602

REACTIONS (5)
  - Plasma cell myeloma [Unknown]
  - Malaise [Unknown]
  - Thrombocytopenia [Unknown]
  - Death [Fatal]
  - Iron deficiency anaemia [Unknown]

NARRATIVE: CASE EVENT DATE: 2016
